FAERS Safety Report 17744863 (Version 1)
Quarter: 2020Q2

REPORT INFORMATION
  Report Type: Spontaneous
  Country: US (occurrence: US)
  Receive Date: 20200504
  Receipt Date: 20200504
  Transmission Date: 20200714
  Serious: No
  Sender: FDA-Public Use
  Company Number: US-BAUSCH-BL-2020-011656

PATIENT
  Age: 76 Year
  Sex: Male
  Weight: 75.82 kg

DRUGS (3)
  1. DORZOLAMIDE HYDROCHLORIDE AND TIMOLOL MALEATE [Suspect]
     Active Substance: DORZOLAMIDE HYDROCHLORIDE\TIMOLOL MALEATE
     Indication: INTRAOCULAR PRESSURE INCREASED
     Dosage: STARTED TWO YEARS AGO SOMETIME IN 2018 (ONE DROP IN EACH EYE TWICE DAILY)
     Route: 047
     Dates: start: 2018
  2. DORZOLAMIDE HYDROCHLORIDE AND TIMOLOL MALEATE [Suspect]
     Active Substance: DORZOLAMIDE HYDROCHLORIDE\TIMOLOL MALEATE
     Dosage: FIRST BOTTLE (ONE DROP IN EACH EYE TWICE DAILY)
     Route: 047
     Dates: start: 2020, end: 2020
  3. DORZOLAMIDE HYDROCHLORIDE AND TIMOLOL MALEATE [Suspect]
     Active Substance: DORZOLAMIDE HYDROCHLORIDE\TIMOLOL MALEATE
     Dosage: SECOND BOTTLE (ONE DROP IN EACH EYE TWICE DAILY)
     Route: 047
     Dates: start: 2020, end: 2020

REACTIONS (3)
  - Product physical consistency issue [Unknown]
  - Eye pain [Recovered/Resolved]
  - Eye irritation [Recovered/Resolved]

NARRATIVE: CASE EVENT DATE: 2018
